FAERS Safety Report 25799636 (Version 1)
Quarter: 2025Q3

REPORT INFORMATION
  Report Type: Spontaneous
  Country: GB (occurrence: GB)
  Receive Date: 20250914
  Receipt Date: 20250914
  Transmission Date: 20251020
  Serious: Yes (Hospitalization, Other)
  Sender: Kenvue
  Company Number: GB-MYLANLABS-2024M1009582

PATIENT

DRUGS (35)
  1. LOPERAMIDE HYDROCHLORIDE [Suspect]
     Active Substance: LOPERAMIDE HYDROCHLORIDE
     Indication: Oesophageal adenocarcinoma
     Route: 065
  2. LOPERAMIDE HYDROCHLORIDE [Suspect]
     Active Substance: LOPERAMIDE HYDROCHLORIDE
     Indication: Gastrooesophageal reflux disease
  3. LOPERAMIDE HYDROCHLORIDE [Suspect]
     Active Substance: LOPERAMIDE HYDROCHLORIDE
     Indication: Product used for unknown indication
  4. LOPERAMIDE HYDROCHLORIDE [Suspect]
     Active Substance: LOPERAMIDE HYDROCHLORIDE
     Indication: Prophylaxis
  5. TEVIMBRA [Suspect]
     Active Substance: TISLELIZUMAB-JSGR
     Indication: Oesophageal adenocarcinoma
     Route: 065
  6. TEVIMBRA [Suspect]
     Active Substance: TISLELIZUMAB-JSGR
     Indication: Gastrooesophageal reflux disease
  7. TEVIMBRA [Suspect]
     Active Substance: TISLELIZUMAB-JSGR
     Indication: Product used for unknown indication
  8. TEVIMBRA [Suspect]
     Active Substance: TISLELIZUMAB-JSGR
     Indication: Prophylaxis
  9. OXALIPLATIN [Suspect]
     Active Substance: OXALIPLATIN
     Indication: Oesophageal adenocarcinoma
     Route: 065
  10. OXALIPLATIN [Suspect]
     Active Substance: OXALIPLATIN
     Indication: Gastrooesophageal reflux disease
  11. OXALIPLATIN [Suspect]
     Active Substance: OXALIPLATIN
     Indication: Product used for unknown indication
  12. OXALIPLATIN [Suspect]
     Active Substance: OXALIPLATIN
     Indication: Prophylaxis
  13. ZANIDATAMAB [Suspect]
     Active Substance: ZANIDATAMAB
     Indication: Oesophageal adenocarcinoma
     Route: 065
  14. ZANIDATAMAB [Suspect]
     Active Substance: ZANIDATAMAB
     Indication: Gastrooesophageal reflux disease
  15. ZANIDATAMAB [Suspect]
     Active Substance: ZANIDATAMAB
     Indication: Product used for unknown indication
  16. ZANIDATAMAB [Suspect]
     Active Substance: ZANIDATAMAB
     Indication: Prophylaxis
  17. CAPECITABINE [Suspect]
     Active Substance: CAPECITABINE
     Indication: Oesophageal adenocarcinoma
     Route: 065
  18. CAPECITABINE [Suspect]
     Active Substance: CAPECITABINE
     Indication: Gastrooesophageal reflux disease
  19. CAPECITABINE [Suspect]
     Active Substance: CAPECITABINE
     Indication: Prophylaxis
  20. CAPECITABINE [Suspect]
     Active Substance: CAPECITABINE
     Indication: Product used for unknown indication
  21. AMINOPHYLLINE [Concomitant]
     Active Substance: AMINOPHYLLINE
     Indication: Product used for unknown indication
     Route: 065
  22. GAVISCON [ALUMINIUM HYDROXIDE;CALCIUM CARBONATE;SODIUM ALGINATE;SODIUM [Concomitant]
     Indication: Product used for unknown indication
     Route: 065
  23. DEXAMETHASONE SODIUM SUCCINATE [Concomitant]
     Active Substance: DEXAMETHASONE SODIUM SUCCINATE
     Indication: Product used for unknown indication
     Route: 065
  24. DOCUSATE SODIUM\SENNOSIDES A AND B [Concomitant]
     Active Substance: DOCUSATE SODIUM\SENNOSIDES A AND B
     Indication: Product used for unknown indication
     Route: 065
  25. CELECOXIB [Concomitant]
     Active Substance: CELECOXIB
     Indication: Product used for unknown indication
     Route: 065
  26. MORPHINE SULFATE [Concomitant]
     Active Substance: MORPHINE SULFATE
     Indication: Product used for unknown indication
     Route: 065
  27. PREGABALIN [Concomitant]
     Active Substance: PREGABALIN
     Indication: Product used for unknown indication
     Route: 065
  28. ACETAMINOPHEN [Concomitant]
     Active Substance: ACETAMINOPHEN
     Indication: Product used for unknown indication
     Route: 065
  29. POLYETHYLENE GLYCOL 3350 [Concomitant]
     Active Substance: POLYETHYLENE GLYCOL 3350
     Indication: Product used for unknown indication
     Route: 065
  30. POTASSIUM CHLORIDE [Concomitant]
     Active Substance: POTASSIUM CHLORIDE
     Indication: Product used for unknown indication
     Route: 065
  31. SODIUM BICARBONATE [Concomitant]
     Active Substance: SODIUM BICARBONATE
     Indication: Product used for unknown indication
     Route: 065
  32. SODIUM CHLORIDE [Concomitant]
     Active Substance: SODIUM CHLORIDE
     Indication: Product used for unknown indication
     Route: 065
  33. COBAMAMIDE [Concomitant]
     Active Substance: COBAMAMIDE
     Indication: Product used for unknown indication
     Route: 065
  34. OMEPRAZOLE SODIUM [Concomitant]
     Active Substance: OMEPRAZOLE SODIUM
     Indication: Product used for unknown indication
     Route: 065
  35. DOCUSATE SODIUM\SENNOSIDES A AND B [Concomitant]
     Active Substance: DOCUSATE SODIUM\SENNOSIDES A AND B
     Indication: Product used for unknown indication
     Route: 065

REACTIONS (2)
  - Pneumonia [Unknown]
  - Product use in unapproved indication [Unknown]
